FAERS Safety Report 4907749-2 (Version None)
Quarter: 2006Q1

REPORT INFORMATION
  Report Type: 
  Country: None (occurrence: None)
  Receive Date: 20060208
  Receipt Date: 20060208
  Transmission Date: 20060701
  Serious: Yes (Hospitalization)
  Sender: FDA-Public Use
  Company Number: None

PATIENT
  Age: 84 Year
  Sex: Male
  Weight: 91.1 kg

DRUGS (15)
  1. WARFARIN [Suspect]
     Indication: ATRIAL FIBRILLATION
     Dosage: 2 MG MWF/4 MG AOD
  2. CLONAZEPAM [Concomitant]
  3. HYDROCODONE 10 MG/APAP [Concomitant]
  4. ALLOPURINOL [Concomitant]
  5. LISINOPRIL [Concomitant]
  6. METOPROLOL TARTRATE [Concomitant]
  7. ARTIFICIAL TEARS POLYVINYL ALCOHOL [Concomitant]
  8. NITROGLYCERIN [Concomitant]
  9. FUROSEMIDE [Concomitant]
  10. PRAZOSIN HCL [Concomitant]
  11. PAROXETINE HCL [Concomitant]
  12. LANOXIN [Concomitant]
  13. MINOCYCLINE HCL [Concomitant]
  14. FEROUS SULFATE [Concomitant]
  15. FINASTERIDE [Concomitant]

REACTIONS (1)
  - GASTROINTESTINAL HAEMORRHAGE [None]
